FAERS Safety Report 20640685 (Version 2)
Quarter: 2022Q2

REPORT INFORMATION
  Report Type: Spontaneous
  Country: US (occurrence: US)
  Receive Date: 20220327
  Receipt Date: 20220403
  Transmission Date: 20220720
  Serious: No
  Sender: FDA-Public Use
  Company Number: US-SA-2022SA099306

PATIENT
  Age: 19 Year
  Sex: Male

DRUGS (1)
  1. DUPIXENT [Suspect]
     Active Substance: DUPILUMAB
     Dosage: 300 MG
     Route: 058

REACTIONS (2)
  - Injection site pain [Unknown]
  - Product preparation error [Unknown]

NARRATIVE: CASE EVENT DATE: 20210914
